FAERS Safety Report 14794640 (Version 1)
Quarter: 2018Q2

REPORT INFORMATION
  Report Type: Report from Study
  Country: IT (occurrence: IT)
  Receive Date: 20180423
  Receipt Date: 20180423
  Transmission Date: 20180711
  Serious: Yes (Other)
  Sender: FDA-Public Use
  Company Number: IT-PFIZER INC-2018163290

PATIENT
  Sex: Female

DRUGS (6)
  1. METOCLOPRAMIDE. [Concomitant]
     Active Substance: METOCLOPRAMIDE
     Indication: VOMITING
     Dosage: ROUTINELY ADMINISTERED, UNTIL 1991
     Dates: end: 1991
  2. CISPLATIN. [Suspect]
     Active Substance: CISPLATIN
     Indication: CERVIX CARCINOMA
     Dosage: 50 MG/M2, ON DAY 1 WITH 1 L PRE-HYDRATION AND 1 L POST-HYDRATION
     Route: 040
  3. BLEOMYCIN [Suspect]
     Active Substance: BLEOMYCIN SULFATE
     Indication: CERVIX CARCINOMA
     Dosage: 30 MG, INFUSION IN 12 HOURS, ON DAY 1
     Route: 042
  4. VINCRISTINE SULFATE. [Suspect]
     Active Substance: VINCRISTINE SULFATE
     Indication: CERVIX CARCINOMA
     Dosage: 1 MG/M2, ON DAY 1
     Route: 040
  5. ONDANSETRON [Concomitant]
     Active Substance: ONDANSETRON
  6. GRANISETRON [Concomitant]
     Active Substance: GRANISETRON
     Dosage: UNK

REACTIONS (1)
  - Bone marrow toxicity [Unknown]
